FAERS Safety Report 24340386 (Version 1)
Quarter: 2024Q3

REPORT INFORMATION
  Report Type: Spontaneous
  Country: US (occurrence: US)
  Receive Date: 20240919
  Receipt Date: 20240919
  Transmission Date: 20241017
  Serious: Yes (Death, Other)
  Sender: AMGEN
  Company Number: US-AMGEN-USASP2024184224

PATIENT

DRUGS (1)
  1. DARBEPOETIN ALFA [Suspect]
     Active Substance: DARBEPOETIN ALFA
     Indication: Anaemia
     Dosage: UNK, QWK
     Route: 065

REACTIONS (32)
  - Death [Fatal]
  - COVID-19 pneumonia [Fatal]
  - Drug-induced liver injury [Unknown]
  - Pulmonary hypertension [Unknown]
  - Infestation [Unknown]
  - Cardiac disorder [Unknown]
  - Injury [Unknown]
  - Poisoning [Unknown]
  - Procedural complication [Unknown]
  - Metabolic disorder [Unknown]
  - Malnutrition [Unknown]
  - Blood disorder [Unknown]
  - Lymphatic disorder [Unknown]
  - Septic shock [Unknown]
  - Infection [Unknown]
  - Sepsis [Unknown]
  - Pneumonia [Unknown]
  - Myocardial infarction [Unknown]
  - Cerebrovascular accident [Unknown]
  - Embolism [Unknown]
  - Thrombosis [Unknown]
  - Shunt thrombosis [Unknown]
  - Renal cell carcinoma [Unknown]
  - Cardiac failure congestive [Unknown]
  - Haemoglobin decreased [Unknown]
  - Iron binding capacity total increased [Unknown]
  - Hepcidin decreased [Unknown]
  - COVID-19 [Unknown]
  - Shunt stenosis [Unknown]
  - Hypertension [Unknown]
  - Alanine aminotransferase abnormal [Unknown]
  - Blood bilirubin abnormal [Unknown]
